FAERS Safety Report 12176264 (Version 1)
Quarter: 2016Q1

REPORT INFORMATION
  Report Type: Spontaneous
  Country: US (occurrence: US)
  Receive Date: 20160315
  Receipt Date: 20160315
  Transmission Date: 20160526
  Serious: Yes (Other)
  Sender: FDA-Public Use
  Company Number: US-JNJFOC-20160304132

PATIENT
  Age: 19 Year
  Sex: Female
  Weight: 69.85 kg

DRUGS (2)
  1. TYLENOL PM EXTRA STRENGTH [Suspect]
     Active Substance: ACETAMINOPHEN\DIPHENHYDRAMINE HYDROCHLORIDE
     Indication: BACK PAIN
     Dosage: 1/2-1 PILL DAILY AS NEEDED
     Route: 048
  2. TYLENOL PM EXTRA STRENGTH [Suspect]
     Active Substance: ACETAMINOPHEN\DIPHENHYDRAMINE HYDROCHLORIDE
     Indication: SLEEP DISORDER THERAPY
     Dosage: 1/2-1 PILL DAILY AS NEEDED
     Route: 048

REACTIONS (4)
  - Euphoric mood [Unknown]
  - Drug administration error [Unknown]
  - Drug dependence [Unknown]
  - Exposure during pregnancy [Unknown]
